FAERS Safety Report 7597476-8 (Version None)
Quarter: 2011Q3

REPORT INFORMATION
  Report Type: 
  Country: None (occurrence: None)
  Receive Date: 20110708
  Receipt Date: 20110629
  Transmission Date: 20111222
  Serious: Yes (Hospitalization)
  Sender: FDA-Public Use
  Company Number: PHHY2011FR58989

PATIENT
  Sex: Male

DRUGS (5)
  1. COZAAR [Suspect]
     Dosage: 25 MG, QD
     Dates: start: 20100813, end: 20110601
  2. NEORAL [Suspect]
     Dosage: 1 DF, BID
     Dates: start: 20100813
  3. CELLCEPT [Suspect]
     Dosage: 500 MG, BID
     Dates: start: 20100813, end: 20110531
  4. ISRADIPINE [Suspect]
     Dosage: 2.5 MG, BID
     Dates: end: 20110601
  5. TRAMADOL HCL [Suspect]
     Dosage: 100 MG/ML, BID

REACTIONS (5)
  - NEUTROPHIL COUNT DECREASED [None]
  - PYREXIA [None]
  - OROPHARYNGEAL PAIN [None]
  - AGRANULOCYTOSIS [None]
  - HAEMOGLOBIN DECREASED [None]
